FAERS Safety Report 23396103 (Version 1)
Quarter: 2024Q1

REPORT INFORMATION
  Report Type: Spontaneous
  Country: FR (occurrence: FR)
  Receive Date: 20240112
  Receipt Date: 20240112
  Transmission Date: 20240409
  Serious: Yes (Hospitalization)
  Sender: FDA-Public Use
  Company Number: FR-SUN PHARMACEUTICAL INDUSTRIES LTD-2023RR-426704

PATIENT
  Age: 63 Year
  Sex: Male
  Weight: 48 kg

DRUGS (3)
  1. OXALIPLATIN [Suspect]
     Active Substance: OXALIPLATIN
     Indication: Oesophageal carcinoma
     Dosage: 120 MILLIGRAM, 1DOSE/2 WEEKS
     Route: 040
     Dates: start: 20230413, end: 20230608
  2. FLUOROURACIL [Suspect]
     Active Substance: FLUOROURACIL
     Indication: Oesophageal carcinoma
     Dosage: 3950 MILLIGRAM, 1DOSE/2 WEEKS
     Route: 040
     Dates: start: 20230413, end: 20230608
  3. KEYTRUDA [Suspect]
     Active Substance: PEMBROLIZUMAB
     Indication: Oesophageal carcinoma
     Dosage: 400 MILLIGRAM, 1DOSE/2 WEEKS
     Route: 040
     Dates: start: 20230413, end: 20230608

REACTIONS (1)
  - Diplopia [Recovered/Resolved]

NARRATIVE: CASE EVENT DATE: 20230618
